FAERS Safety Report 17109875 (Version 2)
Quarter: 2019Q4

REPORT INFORMATION
  Report Type: Spontaneous
  Country: MX (occurrence: MX)
  Receive Date: 20191204
  Receipt Date: 20191218
  Transmission Date: 20200122
  Serious: Yes (Hospitalization, Other)
  Sender: FDA-Public Use
  Company Number: MX-ALVOGEN-2019-ALVOGEN-102102

PATIENT
  Age: 926 Month
  Sex: Female
  Weight: 54 kg

DRUGS (5)
  1. TENORMIN [Suspect]
     Active Substance: ATENOLOL
     Indication: HYPERTENSION
     Dosage: 1/4 TABLET PER DAY
     Route: 065
     Dates: start: 2018
  2. GALVUS MET [Suspect]
     Active Substance: METFORMIN HYDROCHLORIDE\VILDAGLIPTIN
     Indication: DIABETES MELLITUS
     Dosage: METFORMIN: 850.0MG VILDAGLIPTIN: 50.0MG
     Route: 048
  3. GALVUS MET [Suspect]
     Active Substance: METFORMIN HYDROCHLORIDE\VILDAGLIPTIN
     Indication: DIABETES MELLITUS
     Dosage: METFORMIN: 850.0MG VILDAGLIPTIN: 50.0MG
     Route: 048
     Dates: start: 2017
  4. EXFORGE [Suspect]
     Active Substance: AMLODIPINE BESYLATE\VALSARTAN
     Indication: HYPERTENSION
     Dosage: AMLODIPINE: 5.0MG VALSARTAN: 320.0MG
     Route: 048
     Dates: start: 2017
  5. TENORMIN [Suspect]
     Active Substance: ATENOLOL
     Indication: HYPERTENSION
     Route: 048

REACTIONS (7)
  - Memory impairment [Unknown]
  - Ill-defined disorder [Not Recovered/Not Resolved]
  - Malaise [Unknown]
  - Diabetes mellitus [Unknown]
  - Iron deficiency [Recovered/Resolved with Sequelae]
  - Cardiac disorder [Unknown]
  - Renal impairment [Recovered/Resolved with Sequelae]

NARRATIVE: CASE EVENT DATE: 201901
